FAERS Safety Report 23766607 (Version 4)
Quarter: 2024Q4

REPORT INFORMATION
  Report Type: Spontaneous
  Country: US (occurrence: US)
  Receive Date: 20240422
  Receipt Date: 20241025
  Transmission Date: 20250114
  Serious: Yes (Death, Other)
  Sender: BIOVITRUM
  Company Number: US-BIOVITRUM-2024-US-006033

PATIENT
  Age: 80 Year
  Sex: Female

DRUGS (1)
  1. VONJO [Suspect]
     Active Substance: PACRITINIB
     Indication: Essential thrombocythaemia
     Dosage: 200 MG TWICE A DAY
     Route: 048
     Dates: start: 20240327

REACTIONS (12)
  - Alopecia [Unknown]
  - Dizziness [Unknown]
  - Peripheral swelling [Unknown]
  - Affect lability [Unknown]
  - Fatigue [Unknown]
  - Haemoglobin decreased [Unknown]
  - Platelet count decreased [Unknown]
  - Ageusia [Unknown]
  - Asthenia [Unknown]
  - Cardiac failure [Unknown]
  - Intentional product misuse [Not Recovered/Not Resolved]
  - Death [Fatal]

NARRATIVE: CASE EVENT DATE: 20240327
